FAERS Safety Report 8943293 (Version 1)
Quarter: 2012Q4

REPORT INFORMATION
  Report Type: Report from Study
  Country: DE (occurrence: NZ)
  Receive Date: 20121203
  Receipt Date: 20121203
  Transmission Date: 20130627
  Serious: Yes (Hospitalization, Other)
  Sender: FDA-Public Use
  Company Number: NZ-BAXTER-2012BAX025202

PATIENT
  Age: 55 Year
  Sex: Female
  Weight: 62.6 kg

DRUGS (11)
  1. ENDOXAN 1000 MG, POUDRE POUR SOLUTION INJECTABLE [Suspect]
     Indication: BREAST CANCER
     Route: 042
     Dates: start: 20090723
  2. ENDOXAN 1000 MG, POUDRE POUR SOLUTION INJECTABLE [Suspect]
     Route: 042
     Dates: start: 20090813
  3. ENDOXAN 1000 MG, POUDRE POUR SOLUTION INJECTABLE [Suspect]
     Route: 042
     Dates: start: 20090813
  4. BEVACIZUMAB [Suspect]
     Indication: BREAST CANCER
     Route: 042
     Dates: start: 20090723
  5. BEVACIZUMAB [Suspect]
     Route: 042
     Dates: start: 20090813
  6. FLUOROURACIL [Suspect]
     Indication: BREAST CANCER
     Route: 042
     Dates: start: 20090723
  7. FLUOROURACIL [Suspect]
     Route: 042
     Dates: start: 20090813
  8. FLUOROURACIL [Suspect]
     Route: 042
     Dates: start: 20090813
  9. EPIRUBICIN [Suspect]
     Indication: BREAST CANCER
     Route: 042
     Dates: start: 20090723
  10. EPIRUBICIN [Suspect]
     Route: 042
     Dates: start: 20090813
  11. ONDANSETRON [Concomitant]
     Indication: DRUG USE FOR UNKNOWN INDICATION
     Dates: start: 20090727

REACTIONS (2)
  - Neutropenia [Recovered/Resolved]
  - Deep vein thrombosis [Recovered/Resolved]
